FAERS Safety Report 4655417-7 (Version None)
Quarter: 2005Q2

REPORT INFORMATION
  Report Type: 
  Country: None (occurrence: None)
  Receive Date: 20050505
  Receipt Date: 20050415
  Transmission Date: 20051028
  Serious: Yes (Other)
  Sender: FDA-Public Use
  Company Number: USA050495828

PATIENT
  Age: 17 Year
  Sex: Male

DRUGS (2)
  1. STRATTERA [Suspect]
     Dosage: 25 MG/ 2 DAY
     Dates: start: 20050301
  2. ZOLOF (SETRALINE HYDROCHLORIDE) [Concomitant]

REACTIONS (1)
  - MITRAL VALVE PROLAPSE [None]
